FAERS Safety Report 7604286-1 (Version None)
Quarter: 2011Q3

REPORT INFORMATION
  Report Type: 
  Country: None (occurrence: None)
  Receive Date: 20110712
  Receipt Date: 20110711
  Transmission Date: 20111222
  Serious: Yes (Hospitalization)
  Sender: FDA-Public Use
  Company Number: DE-PFIZER INC-2011149323

PATIENT
  Age: 48 Year
  Sex: Male
  Weight: 89 kg

DRUGS (8)
  1. NEBIDO [Concomitant]
     Indication: HYPOGONADISM
  2. NEBIDO [Concomitant]
     Indication: BLOOD LUTEINISING HORMONE DECREASED
     Dosage: 1000 MG, EVERY 12 WEEKS
     Dates: start: 20070101
  3. CALCIUM [Concomitant]
     Indication: CALCIUM METABOLISM DISORDER
     Dosage: 500 MG, 1X/DAY
     Route: 048
     Dates: start: 20030325, end: 20110516
  4. HYDROCORTISONE [Concomitant]
     Indication: BLOOD CORTICOTROPHIN DECREASED
     Dosage: 30 MG, 1X/DAY
     Route: 048
     Dates: start: 19871201, end: 20110516
  5. NEBIDO [Concomitant]
     Indication: BLOOD FOLLICLE STIMULATING HORMONE DECREASED
  6. SOMATROPIN [Suspect]
     Indication: HYPOPITUITARISM
     Dosage: 0.6 MG, 1X/DAY
     Route: 058
     Dates: start: 20020117
  7. VIGANTOLETTEN ^MERCK^ [Concomitant]
     Indication: VITAMIN D DEFICIENCY
     Dosage: 1000 IU, 1X/DAY
     Dates: start: 20030325
  8. LEVOTHYROXINE [Concomitant]
     Indication: HYPOTHYROIDISM
     Dosage: 100 UG, 1X/DAY
     Dates: start: 19871201

REACTIONS (1)
  - MENINGIOMA [None]
